FAERS Safety Report 15509025 (Version 3)
Quarter: 2018Q4

REPORT INFORMATION
  Report Type: Spontaneous
  Country: JP (occurrence: JP)
  Receive Date: 20181016
  Receipt Date: 20181113
  Transmission Date: 20190205
  Serious: Yes (Hospitalization, Other)
  Sender: FDA-Public Use
  Company Number: JP-GLAXOSMITHKLINE-JP2018JPN174507

PATIENT
  Age: 90 Year
  Sex: Male

DRUGS (22)
  1. OMEGACIN [Concomitant]
     Active Substance: BIAPENEM
     Dosage: 0.3 G, BID
     Dates: start: 20180811
  2. ELIQUIS [Concomitant]
     Active Substance: APIXABAN
     Dosage: 2.5 MG, BID
     Dates: start: 20180926
  3. SENNOSIDE TABLETS [Concomitant]
     Dosage: 12 MG, QD
     Dates: start: 20180926
  4. LACTULOSE SYRUP [Concomitant]
     Dosage: 10 ML, TID
     Dates: start: 20180926
  5. ITRACONAZOLE. [Concomitant]
     Active Substance: ITRACONAZOLE
     Dosage: 100 MG, QD
     Dates: start: 20180926
  6. AZOSEMIDE [Concomitant]
     Active Substance: AZOSEMIDE
     Dosage: UNK
  7. TAMSULOSIN HYDROCHLORIDE OD [Concomitant]
     Active Substance: TAMSULOSIN HYDROCHLORIDE
     Dosage: 0.2 MG(AFTER BREAKFAST)/0.1MG(AFTER DINNER), BID
     Dates: start: 20180926
  8. LANSOPRAZOLE. [Concomitant]
     Active Substance: LANSOPRAZOLE
     Dosage: 10 MG, QD
     Dates: start: 20180926
  9. FEBURIC TABLETS [Concomitant]
     Active Substance: FEBUXOSTAT
     Dosage: 10 MG, QD
     Dates: start: 20180926
  10. ALFACALCIDOL CAPSULE [Concomitant]
     Dosage: 0.5 ?G, UNK
  11. ALFACALCIDOL CAPSULE [Concomitant]
     Dosage: 0.25 ?G, QD
     Dates: start: 20180919
  12. NESP [Concomitant]
     Active Substance: DARBEPOETIN ALFA
     Indication: NEPHROGENIC ANAEMIA
     Dosage: UNK
  13. MAINTATE [Concomitant]
     Active Substance: BISOPROLOL FUMARATE
     Dosage: 0.625 MG, QD
     Dates: start: 20180926
  14. AMBROXOL HYDROCHLORIDE OD [Concomitant]
     Dosage: 45 MG, QD
     Dates: start: 20180926
  15. RIVASTACH [Concomitant]
     Active Substance: RIVASTIGMINE
     Dosage: 1 DF, QD
     Dates: start: 20180926
  16. SAMTIREL [Suspect]
     Active Substance: ATOVAQUONE
     Indication: PROPHYLAXIS
     Dosage: 1 DF, UNK
     Route: 048
     Dates: start: 20180817, end: 20180905
  17. PREDONINE [Concomitant]
     Active Substance: PREDNISOLONE
     Dosage: 5 MG, QD
     Dates: start: 20180926
  18. LYRICA OD TABLETS [Concomitant]
     Dosage: 50 MG, QD
     Dates: start: 20180919
  19. GRACEVIT [Concomitant]
     Active Substance: SITAFLOXACIN
     Dosage: 50 MG, UNK
     Dates: start: 20180810
  20. BAYASPIRIN [Concomitant]
     Active Substance: ASPIRIN
     Dosage: 100 MG, QD
     Dates: start: 20180926
  21. ETHYL ICOSAPENTATE [Concomitant]
     Active Substance: ICOSAPENT ETHYL
     Dosage: 300 MG, TID
     Dates: start: 20180926
  22. DIART [Concomitant]
     Active Substance: AZOSEMIDE
     Dosage: 9.9 MG, QD
     Dates: start: 20180926

REACTIONS (3)
  - Thrombocytopenia [Recovered/Resolved]
  - Platelet count decreased [Recovered/Resolved]
  - Urinary tract infection [Recovering/Resolving]

NARRATIVE: CASE EVENT DATE: 20180922
